FAERS Safety Report 24112594 (Version 1)
Quarter: 2024Q3

REPORT INFORMATION
  Report Type: Report from Study
  Country: RU (occurrence: None)
  Receive Date: 20240719
  Receipt Date: 20240719
  Transmission Date: 20241017
  Serious: Yes (Hospitalization, Other)
  Sender: ASTRAZENECA
  Company Number: 2019SF73155

PATIENT
  Age: 59 Year
  Sex: Male

DRUGS (8)
  1. BRILINTA [Suspect]
     Active Substance: TICAGRELOR
     Indication: Stent placement
     Route: 048
     Dates: start: 201909
  2. OMEPRAZOLE [Concomitant]
     Active Substance: OMEPRAZOLE
  3. GLYCINE [Concomitant]
     Active Substance: GLYCINE
  4. LISINOPRIL [Concomitant]
     Active Substance: LISINOPRIL
  5. ATORVASTATIN [Concomitant]
     Active Substance: ATORVASTATIN
  6. SIMVASTATIN [Concomitant]
     Active Substance: SIMVASTATIN
  7. EMOXYPINE SUCCINATE [Concomitant]
     Active Substance: EMOXYPINE SUCCINATE
  8. ASK [Concomitant]

REACTIONS (1)
  - Blood pressure increased [Unknown]

NARRATIVE: CASE EVENT DATE: 20191115
